FAERS Safety Report 10025245 (Version 1)
Quarter: 2014Q1

REPORT INFORMATION
  Report Type: Report from Study
  Country: ES (occurrence: ES)
  Receive Date: 20140320
  Receipt Date: 20140320
  Transmission Date: 20141002
  Serious: Yes (Other)
  Sender: FDA-Public Use
  Company Number: ES-GLAXOSMITHKLINE-A0921921A

PATIENT
  Age: 59 Year
  Sex: Female
  Weight: 42 kg

DRUGS (7)
  1. TRAMETINIB [Suspect]
     Indication: COLON CANCER
     Dosage: 1.5MG PER DAY
     Route: 048
     Dates: start: 20110301, end: 20110321
  2. INVESTIGATIONAL MEDICATION [Suspect]
     Indication: COLON CANCER
     Dosage: 80MG PER DAY
     Route: 048
     Dates: start: 20110301, end: 20110321
  3. TROMALYT [Concomitant]
  4. OMEPRAZOLE [Concomitant]
  5. FENTANYL [Concomitant]
  6. DOMPERIDONE [Concomitant]
  7. MOVICOL [Concomitant]

REACTIONS (1)
  - Blood creatine phosphokinase increased [Recovered/Resolved]
